FAERS Safety Report 6157792-3 (Version None)
Quarter: 2009Q2

REPORT INFORMATION
  Report Type: 
  Country: None (occurrence: None)
  Receive Date: 20090407
  Receipt Date: 20090330
  Transmission Date: 20091009
  Serious: Yes (Other)
  Sender: FDA-Public Use
  Company Number: AEUSA200900065

PATIENT

DRUGS (5)
  1. IMMUNE GLOBULIN (HUMAN) [Suspect]
     Indication: PRIMARY IMMUNODEFICIENCY SYNDROME
     Dosage: 35 GM;QM;IV
     Route: 042
     Dates: end: 20080501
  2. ACETAMINOPHEN [Concomitant]
  3. DIPHENHYDRAMINE HCL [Concomitant]
  4. HYDROCHLORIDE [Concomitant]
  5. ALEVE [Concomitant]

REACTIONS (3)
  - PHARYNGEAL OEDEMA [None]
  - THROAT TIGHTNESS [None]
  - URTICARIA [None]
